FAERS Safety Report 8178504-8 (Version None)
Quarter: 2012Q1

REPORT INFORMATION
  Report Type: 
  Country: None (occurrence: None)
  Receive Date: 20120301
  Receipt Date: 20120222
  Transmission Date: 20120608
  Serious: Yes (Congenital Anomaly)
  Sender: FDA-Public Use
  Company Number: PHHY2011US90522

PATIENT

DRUGS (5)
  1. CLONAZEPAM [Suspect]
     Dosage: 3500 MG, UNK
     Route: 064
  2. TOPIRAMATE [Suspect]
     Route: 064
  3. GABAPENTIN [Suspect]
     Route: 064
  4. CARBAMAZEPINE [Suspect]
     Route: 064
  5. CLONAZEPAM [Suspect]
     Route: 064

REACTIONS (2)
  - FOETAL EXPOSURE DURING PREGNANCY [None]
  - CLEFT LIP AND PALATE [None]
